FAERS Safety Report 8248556-5 (Version None)
Quarter: 2012Q1

REPORT INFORMATION
  Report Type: 
  Country: None (occurrence: None)
  Receive Date: 20120330
  Receipt Date: 20120320
  Transmission Date: 20120608
  Serious: Yes (Hospitalization)
  Sender: FDA-Public Use
  Company Number: FR-RB-038554-12

PATIENT
  Age: 23 Year
  Sex: Male

DRUGS (2)
  1. SUBUTEX [Suspect]
     Indication: DRUG WITHDRAWAL MAINTENANCE THERAPY
     Dosage: DAILY
     Route: 065
     Dates: end: 20110708
  2. MDMA [Suspect]
     Indication: PRODUCT USED FOR UNKNOWN INDICATION
     Dosage: DOSE NOT REPORTED
     Route: 065
     Dates: end: 20110708

REACTIONS (5)
  - TACHYCARDIA [None]
  - HYPERTENSION [None]
  - MYDRIASIS [None]
  - WITHDRAWAL SYNDROME [None]
  - AGITATION [None]
